FAERS Safety Report 9992819 (Version 1)
Quarter: 2014Q1

REPORT INFORMATION
  Report Type: Report from Study
  Country: US (occurrence: US)
  Receive Date: 20140310
  Receipt Date: 20140310
  Transmission Date: 20141002
  Serious: Yes (Other)
  Sender: FDA-Public Use
  Company Number: US-BRISTOL-MYERS SQUIBB COMPANY-20355855

PATIENT
  Age: 41 Year
  Sex: Male
  Weight: 88.5 kg

DRUGS (1)
  1. IPILIMUMAB [Suspect]
     Indication: MALIGNANT MELANOMA
     Dosage: LAST DOSE:21MAR12?10 MG/KG 90 MINS,/3 WEEKS X 4 DOSES?10MG/KG 90 MINS,/12 WEEKS ON 24,36,48,+60.
     Route: 042
     Dates: start: 20120321

REACTIONS (1)
  - Blood creatine phosphokinase increased [Recovered/Resolved]
